FAERS Safety Report 8315191-X (Version None)
Quarter: 2012Q2

REPORT INFORMATION
  Report Type: 
  Country: None (occurrence: None)
  Receive Date: 20120426
  Receipt Date: 20120424
  Transmission Date: 20120825
  Serious: Yes (Other)
  Sender: FDA-Public Use
  Company Number: IE-GLAXOSMITHKLINE-B0798115A

PATIENT
  Sex: Male

DRUGS (2)
  1. BLOOD PRESSURE MEDICATION [Concomitant]
  2. FLUTICASONE FUROATE [Suspect]
     Indication: RHINITIS ALLERGIC
     Dosage: 2SPR AT NIGHT
     Route: 045
     Dates: start: 20110801, end: 20120424

REACTIONS (4)
  - ALANINE AMINOTRANSFERASE INCREASED [None]
  - NASAL DISCOMFORT [None]
  - GAMMA-GLUTAMYLTRANSFERASE INCREASED [None]
  - ASPARTATE AMINOTRANSFERASE INCREASED [None]
